FAERS Safety Report 9097703 (Version 1)
Quarter: 2013Q1

REPORT INFORMATION
  Report Type: Spontaneous
  Country: US (occurrence: US)
  Receive Date: 20130212
  Receipt Date: 20130212
  Transmission Date: 20140127
  Serious: Yes (Other)
  Sender: FDA-Public Use
  Company Number: US-FRI-1000042506

PATIENT
  Sex: Male
  Weight: 91 kg

DRUGS (3)
  1. LEXAPRO [Suspect]
     Indication: ANXIETY
     Dates: start: 2007, end: 200803
  2. LEXAPRO [Suspect]
     Indication: DEPRESSION
  3. INTERFERON [Concomitant]
     Indication: HEPATITIS C

REACTIONS (3)
  - Haemorrhagic stroke [Recovered/Resolved with Sequelae]
  - Asthenia [Recovered/Resolved]
  - Coordination abnormal [Recovered/Resolved]
